FAERS Safety Report 14540013 (Version 1)
Quarter: 2018Q1

REPORT INFORMATION
  Report Type: Spontaneous
  Country: US (occurrence: US)
  Receive Date: 20180215
  Receipt Date: 20180215
  Transmission Date: 20180509
  Serious: Yes (Hospitalization)
  Sender: FDA-Public Use
  Company Number: None

PATIENT
  Sex: Female
  Weight: 112.04 kg

DRUGS (1)
  1. MIRENA [Suspect]
     Active Substance: LEVONORGESTREL

REACTIONS (6)
  - Hypertension [None]
  - Chest pain [None]
  - Migraine [None]
  - Palpitations [None]
  - Vision blurred [None]
  - Metrorrhagia [None]

NARRATIVE: CASE EVENT DATE: 20160718
